FAERS Safety Report 17855748 (Version 1)
Quarter: 2020Q2

REPORT INFORMATION
  Report Type: Spontaneous
  Country: US (occurrence: US)
  Receive Date: 20200603
  Receipt Date: 20200603
  Transmission Date: 20200714
  Serious: Yes (Life-Threatening, Hospitalization, Disabling, Other)
  Sender: FDA-Public Use
  Company Number: None

PATIENT
  Age: 55 Year
  Sex: Male
  Weight: 99 kg

DRUGS (22)
  1. ERGOCALCIFEROL. [Concomitant]
     Active Substance: ERGOCALCIFEROL
     Dates: start: 20200602
  2. ONDANSETRON [Concomitant]
     Active Substance: ONDANSETRON
     Dates: start: 20200601, end: 20200601
  3. PANTOPRAZOLE [Concomitant]
     Active Substance: PANTOPRAZOLE
     Dates: start: 20200601
  4. VANCOMYCIN [Concomitant]
     Active Substance: VANCOMYCIN
     Dates: start: 20200601, end: 20200601
  5. REMDESIVIR. [Suspect]
     Active Substance: REMDESIVIR
     Indication: COVID-19
     Dosage: ?          OTHER FREQUENCY:ONCE;?
     Route: 042
     Dates: start: 20200601, end: 20200602
  6. ROCURONIUM [Concomitant]
     Active Substance: ROCURONIUM BROMIDE
     Dates: start: 20200601, end: 20200601
  7. INSULIN REGULAR [Concomitant]
     Active Substance: INSULIN NOS
     Dates: start: 20200601
  8. CEFTRIAXONE. [Concomitant]
     Active Substance: CEFTRIAXONE
     Dates: start: 20200601
  9. INSULIN GLARGINE [Concomitant]
     Active Substance: INSULIN GLARGINE
     Dates: start: 20200601
  10. MELATONIN [Concomitant]
     Active Substance: MELATONIN
     Dates: start: 20200601
  11. THIAMINE. [Concomitant]
     Active Substance: THIAMINE
     Dates: start: 20200601
  12. FENTANYL. [Concomitant]
     Active Substance: FENTANYL
     Dates: start: 20200601
  13. ASCORBIC ACID. [Concomitant]
     Active Substance: ASCORBIC ACID
     Dates: start: 20200601
  14. ATORVASTATIN [Concomitant]
     Active Substance: ATORVASTATIN
     Dates: start: 20200601
  15. HEPARIN [Concomitant]
     Active Substance: HEPARIN SODIUM
     Dates: start: 20200601
  16. KETAMINE [Concomitant]
     Active Substance: KETAMINE
     Dates: start: 20200601, end: 20200601
  17. ZINC SULFATE. [Concomitant]
     Active Substance: ZINC SULFATE
     Dates: start: 20200601
  18. ALBUMIN [Concomitant]
     Active Substance: ALBUMIN HUMAN
     Dates: start: 20200602
  19. AZITHROMYCIN ANHYDROUS. [Concomitant]
     Active Substance: AZITHROMYCIN ANHYDROUS
     Dates: start: 20200601
  20. HYDROXYCHLOROQUINE [Concomitant]
     Active Substance: HYDROXYCHLOROQUINE
     Dates: start: 20200601, end: 20200601
  21. ACETAMINOPHEN. [Concomitant]
     Active Substance: ACETAMINOPHEN
     Dates: start: 20200601
  22. SUCCINYLCHOLINE [Concomitant]
     Active Substance: SUCCINYLCHOLINE
     Dates: start: 20200601, end: 20200601

REACTIONS (1)
  - Blood creatinine increased [None]

NARRATIVE: CASE EVENT DATE: 20200602
